FAERS Safety Report 5834616-2 (Version None)
Quarter: 2008Q3

REPORT INFORMATION
  Report Type: 
  Country: None (occurrence: None)
  Receive Date: 20080805
  Receipt Date: 20080724
  Transmission Date: 20090109
  Serious: Yes (Other)
  Sender: FDA-Public Use
  Company Number: US-ELI_LILLY_AND_COMPANY-US200804006369

PATIENT
  Sex: Female
  Weight: 88.889 kg

DRUGS (6)
  1. CYMBALTA [Suspect]
     Indication: NEURALGIA
     Dosage: 60 MG, DAILY (1/D)
     Dates: start: 20080131, end: 20080403
  2. PROTONIX [Concomitant]
     Indication: GASTROOESOPHAGEAL REFLUX DISEASE
     Dosage: 40 MG, DAILY (1/D)
  3. SKELAXIN [Concomitant]
     Indication: MYALGIA
     Dosage: 800 MG, 3/D
  4. NAPROSYN [Concomitant]
     Indication: PAIN
     Dosage: 500 MG, 2/D
  5. RELPAX [Concomitant]
     Indication: MIGRAINE
     Dosage: 40 MG, AS NEEDED
  6. XANAX [Concomitant]
     Indication: ANXIETY
     Dosage: 0.25 MG, AS NEEDED
     Dates: start: 20080101

REACTIONS (5)
  - ABDOMINAL PAIN [None]
  - BACK PAIN [None]
  - HEPATOTOXICITY [None]
  - NAUSEA [None]
  - VOMITING [None]
